FAERS Safety Report 6430961-0 (Version None)
Quarter: 2009Q4

REPORT INFORMATION
  Report Type: 
  Country: None (occurrence: None)
  Receive Date: 20091106
  Receipt Date: 20091027
  Transmission Date: 20100525
  Serious: Yes (Hospitalization)
  Sender: FDA-Public Use
  Company Number: ES-PFIZER INC-2009289865

PATIENT
  Age: 70 Year
  Sex: Female

DRUGS (4)
  1. DALACIN [Suspect]
     Indication: SEPSIS
     Dosage: 300 MG, 3X/DAY
     Route: 048
     Dates: start: 20090723, end: 20090728
  2. PARACETAMOL [Concomitant]
     Indication: PAIN
     Dosage: 1 G, 3X/DAY
     Route: 048
     Dates: start: 20090722
  3. OMEPRAZOLE [Concomitant]
     Indication: GASTRITIS PROPHYLAXIS
     Dosage: 20 MG, 1X/DAY
     Route: 048
     Dates: start: 20090722
  4. ENOXAPARIN SODIUM [Concomitant]
     Indication: CARDIOVASCULAR EVENT PROPHYLAXIS
     Dosage: 40 MG, 1X/DAY
     Route: 058
     Dates: start: 20090722, end: 20090808

REACTIONS (2)
  - DEHYDRATION [None]
  - GASTRITIS [None]
